FAERS Safety Report 6147229-2 (Version None)
Quarter: 2009Q2

REPORT INFORMATION
  Report Type: 
  Country: None (occurrence: None)
  Receive Date: 20090408
  Receipt Date: 20070928
  Transmission Date: 20091009
  Serious: Yes (Death, Other)
  Sender: FDA-Public Use
  Company Number: US-ASTRAZENECA-2006UW23614

PATIENT
  Age: 14425 Day
  Sex: Male
  Weight: 118.4 kg

DRUGS (26)
  1. SEROQUEL [Suspect]
     Indication: ANXIETY
     Route: 048
     Dates: start: 20030101, end: 20051209
  2. SEROQUEL [Suspect]
     Indication: SOCIAL PHOBIA
     Route: 048
     Dates: start: 20030101, end: 20051209
  3. SEROQUEL [Suspect]
     Indication: DYSTHYMIC DISORDER
     Route: 048
     Dates: start: 20030101, end: 20051209
  4. SEROQUEL [Suspect]
     Indication: ADJUSTMENT DISORDER
     Route: 048
     Dates: start: 20030101, end: 20051209
  5. SEROQUEL [Suspect]
     Indication: DEPRESSION
     Route: 048
     Dates: start: 20030101, end: 20051209
  6. SEROQUEL [Suspect]
     Indication: SLEEP DISORDER
     Route: 048
     Dates: start: 20030101, end: 20051209
  7. SEROQUEL [Suspect]
     Dosage: 100 TO 200 MG
     Route: 048
     Dates: start: 20030101
  8. SEROQUEL [Suspect]
     Dosage: 100 TO 200 MG
     Route: 048
     Dates: start: 20030101
  9. SEROQUEL [Suspect]
     Dosage: 100 TO 200 MG
     Route: 048
     Dates: start: 20030101
  10. SEROQUEL [Suspect]
     Dosage: 100 TO 200 MG
     Route: 048
     Dates: start: 20030101
  11. SEROQUEL [Suspect]
     Dosage: 100 TO 200 MG
     Route: 048
     Dates: start: 20030101
  12. SEROQUEL [Suspect]
     Dosage: 100 TO 200 MG
     Route: 048
     Dates: start: 20030101
  13. PAXIL [Concomitant]
  14. DIAZEPAM [Concomitant]
  15. CYMBALTA [Concomitant]
  16. PRAVACHOL [Concomitant]
  17. PREVACID [Concomitant]
  18. TRICOR [Concomitant]
  19. FLUCONAZOLE [Concomitant]
  20. COMBIVENT [Concomitant]
  21. MIRTAZAPINE [Concomitant]
  22. PROTONIX [Concomitant]
  23. INDOMETHACIN [Concomitant]
  24. DICYCLOMINE [Concomitant]
  25. BUSPAR [Concomitant]
  26. VISTARIL [Concomitant]

REACTIONS (7)
  - AGORAPHOBIA [None]
  - DEATH [None]
  - IRRITABLE BOWEL SYNDROME [None]
  - LIGAMENT CALCIFICATION [None]
  - LUNG DISORDER [None]
  - PANCREATITIS [None]
  - PANIC ATTACK [None]
